FAERS Safety Report 8254701 (Version 3)
Quarter: 2013Q2

REPORT INFORMATION
  Report Type: Report from Study
  Country: MX (occurrence: MX)
  Receive Date: 20111118
  Receipt Date: 20130626
  Transmission Date: 20140414
  Serious: Yes (Other)
  Sender: FDA-Public Use
  Company Number: PHHY2011MX21902

PATIENT
  Age: 53 Year
  Sex: Female

DRUGS (6)
  1. ACLASTA [Suspect]
     Indication: OSTEOPOROSIS
     Dosage: 1 APPLICATION OF 5 MG/100 ML, YEARLY
     Route: 042
     Dates: start: 20110309
  2. ACLASTA [Suspect]
     Dosage: 1 APPLICATION OF 5 MG/100 ML, YEARLY
     Route: 042
     Dates: start: 2012
  3. ARCOXIA [Concomitant]
     Dosage: 1 DF, UNK
     Dates: start: 20111001
  4. EUTIROX [Concomitant]
     Dosage: 1 DF, DAILY
     Dates: start: 201202
  5. VYTORIN [Concomitant]
     Dosage: 1 DF, DAILY
     Dates: start: 201112
  6. CELEBREX [Concomitant]
     Dosage: 1 DF, DAILY
     Dates: start: 201202

REACTIONS (5)
  - Chest pain [Recovered/Resolved]
  - Dyspnoea [Recovered/Resolved]
  - Pain [Recovered/Resolved]
  - Musculoskeletal pain [Recovered/Resolved]
  - Arthralgia [Recovered/Resolved]
